FAERS Safety Report 12164917 (Version 1)
Quarter: 2016Q1

REPORT INFORMATION
  Report Type: Report from Study
  Country: US (occurrence: US)
  Receive Date: 20160309
  Receipt Date: 20160309
  Transmission Date: 20160526
  Serious: Yes (Other)
  Sender: FDA-Public Use
  Company Number: US-ABBVIE-15P-163-1498982-00

PATIENT
  Age: 27 Year
  Sex: Female

DRUGS (2)
  1. BENZACLIN TOPICAL [Concomitant]
     Indication: ACNE
     Dosage: TOPICALLY TO FACE DAILY
     Route: 061
  2. LUPRON DEPOT [Suspect]
     Active Substance: LEUPROLIDE ACETATE
     Indication: ENDOMETRIOSIS
     Route: 065

REACTIONS (4)
  - Hot flush [Recovered/Resolved]
  - Appendicectomy [Recovered/Resolved]
  - Abdominal pain lower [Not Recovered/Not Resolved]
  - Pelvic pain [Not Recovered/Not Resolved]

NARRATIVE: CASE EVENT DATE: 2013
